FAERS Safety Report 5567718-9 (Version None)
Quarter: 2007Q4

REPORT INFORMATION
  Report Type: 
  Country: None (occurrence: None)
  Receive Date: 20071219
  Receipt Date: 20071213
  Transmission Date: 20080405
  Serious: Yes (Life-Threatening, Other)
  Sender: FDA-Public Use
  Company Number: US-PFIZER INC-2007105442

PATIENT
  Sex: Female
  Weight: 72.6 kg

DRUGS (2)
  1. LIPITOR [Suspect]
     Indication: BLOOD CHOLESTEROL INCREASED
  2. VALSARTAN [Concomitant]

REACTIONS (2)
  - INTRACRANIAL ANEURYSM [None]
  - TRANSIENT ISCHAEMIC ATTACK [None]
